FAERS Safety Report 8353232-4 (Version None)
Quarter: 2012Q2

REPORT INFORMATION
  Report Type: 
  Country: None (occurrence: None)
  Receive Date: 20120509
  Receipt Date: 20120428
  Transmission Date: 20120825
  Serious: Yes (Hospitalization, Other)
  Sender: FDA-Public Use
  Company Number: 2012SP022709

PATIENT
  Sex: Female

DRUGS (3)
  1. PEGASYS [Suspect]
     Indication: HEPATITIS C
  2. PEG-INTRON [Suspect]
     Indication: HEPATITIS C
     Dates: start: 20120301, end: 20120425
  3. RIBAVIRIN [Suspect]
     Indication: HEPATITIS C
     Dates: start: 20120301, end: 20120425

REACTIONS (9)
  - DIZZINESS [None]
  - BRADYCARDIA [None]
  - INFLUENZA LIKE ILLNESS [None]
  - GAIT DISTURBANCE [None]
  - ABNORMAL SENSATION IN EYE [None]
  - DEPRESSION [None]
  - CHILLS [None]
  - CEREBROVASCULAR ACCIDENT [None]
  - BLOOD PRESSURE INCREASED [None]
